FAERS Safety Report 23193974 (Version 1)
Quarter: 2023Q4

REPORT INFORMATION
  Report Type: Spontaneous
  Country: US (occurrence: US)
  Receive Date: 20231117
  Receipt Date: 20231117
  Transmission Date: 20240109
  Serious: Yes (Hospitalization, Other)
  Sender: FDA-Public Use
  Company Number: US-BRISTOL-MYERS SQUIBB COMPANY-2023-163261

PATIENT
  Age: 76 Year
  Sex: Male

DRUGS (5)
  1. ELIQUIS [Suspect]
     Active Substance: APIXABAN
     Indication: Thrombosis
     Dates: end: 20220915
  2. INGREZZA [Suspect]
     Active Substance: VALBENAZINE
     Indication: Tardive dyskinesia
     Route: 048
     Dates: start: 20210515, end: 20210726
  3. INGREZZA [Suspect]
     Active Substance: VALBENAZINE
     Route: 048
     Dates: start: 20210727, end: 20230314
  4. INGREZZA [Suspect]
     Active Substance: VALBENAZINE
     Dosage: ALTERNATE DAY DOSING (EVERY OTHER DAY, EVERY THIRD DAY, ETC), TWICE PER WEEK
     Route: 048
     Dates: start: 20230426
  5. INGREZZA [Suspect]
     Active Substance: VALBENAZINE
     Dosage: EVERY 5TH DAY
     Route: 048

REACTIONS (8)
  - Cerebral haemorrhage [Recovered/Resolved with Sequelae]
  - Tremor [Unknown]
  - Mitral valve disease [Unknown]
  - Dysphagia [Unknown]
  - Somnolence [Unknown]
  - Drooling [Unknown]
  - Fatigue [Unknown]
  - Cardiac disorder [Unknown]

NARRATIVE: CASE EVENT DATE: 20220915
